FAERS Safety Report 7349758-2 (Version None)
Quarter: 2011Q1

REPORT INFORMATION
  Report Type: 
  Country: None (occurrence: None)
  Receive Date: 20110218
  Receipt Date: 20100319
  Transmission Date: 20110831
  Serious: Yes (Other)
  Sender: FDA-Public Use
  Company Number: JHP201000107

PATIENT
  Sex: Female

DRUGS (1)
  1. APLISOL [Suspect]
     Indication: TUBERCULIN TEST
     Dosage: 0.1ML, SINGLE, INTRADERMAL
     Route: 023
     Dates: start: 20100317, end: 20100317

REACTIONS (1)
  - HYPERSENSITIVITY [None]
